FAERS Safety Report 9164385 (Version 1)
Quarter: 2013Q1

REPORT INFORMATION
  Report Type: Spontaneous
  Country: DE (occurrence: None)
  Receive Date: 20130226
  Receipt Date: 20130226
  Transmission Date: 20140127
  Serious: Yes (Other)
  Sender: FDA-Public Use
  Company Number: GER/GER/13/0028188

PATIENT
  Age: 31 Year
  Sex: Female

DRUGS (6)
  1. VENLAFAXINE (VENLAFAXINE) [Suspect]
     Dates: start: 20111012
  2. METFORMIN [Suspect]
     Route: 048
  3. MELPERONE (MELPERONE) [Suspect]
     Route: 048
     Dates: start: 20111012
  4. FRAGMIN P FORTE (DALTEPARIN SODIUM) SOLUTION FOR INJECTION [Concomitant]
  5. KADEFUNGINCOMBI (CLOTRIMAZOL) [Concomitant]
  6. VITAMINS [Suspect]

REACTIONS (3)
  - Factor V deficiency [None]
  - Maternal exposure timing unspecified [None]
  - Vulvovaginal mycotic infection [None]
